FAERS Safety Report 4708654-7 (Version None)
Quarter: 2005Q3

REPORT INFORMATION
  Report Type: 
  Country: None (occurrence: None)
  Receive Date: 20050705
  Receipt Date: 20050623
  Transmission Date: 20060218
  Serious: Yes (Hospitalization)
  Sender: FDA-Public Use
  Company Number: THQ2005A00551

PATIENT
  Age: 73 Year
  Sex: Female

DRUGS (9)
  1. PIOGLITAZONE HCL [Suspect]
     Indication: DIABETES MELLITUS
     Dosage: 30 MG (30 MG 1 IN 1 D), PER ORAL
     Route: 048
     Dates: start: 20040512
  2. PIOGLITAZONE HCL [Suspect]
     Dosage: 30 MG (30 MG 1 IN 1 D), PER ORAL
     Route: 048
     Dates: end: 20050222
  3. LIPITOR [Concomitant]
  4. NITRO-DUR [Concomitant]
  5. ATIVAN [Concomitant]
  6. GLUCOPHAGE [Concomitant]
  7. MONOCOR (BISOPROLOL FUMARATE) [Concomitant]
  8. SYNTHROID [Concomitant]
  9. AVALIDE (KARVEA HCT) [Concomitant]

REACTIONS (12)
  - ACUTE PULMONARY OEDEMA [None]
  - BLOOD PRESSURE INCREASED [None]
  - CARDIAC FAILURE [None]
  - CORONARY ARTERY OCCLUSION [None]
  - CORONARY ARTERY STENOSIS [None]
  - FLUID OVERLOAD [None]
  - FLUID RETENTION [None]
  - IRON DEFICIENCY ANAEMIA [None]
  - JUGULAR VEIN DISTENSION [None]
  - MYOCARDIAL INFARCTION [None]
  - OEDEMA PERIPHERAL [None]
  - PULMONARY OEDEMA [None]
